FAERS Safety Report 10737844 (Version 1)
Quarter: 2015Q1

REPORT INFORMATION
  Report Type: Spontaneous
  Country: US (occurrence: None)
  Receive Date: 20150122
  Receipt Date: 20150122
  Transmission Date: 20150721
  Serious: Yes (Other)
  Sender: FDA-Public Use
  Company Number: ADR-2015-00126

PATIENT
  Age: 50 Year
  Sex: Female

DRUGS (2)
  1. HYDROMORPHONE INTRATHECAL [Suspect]
     Active Substance: HYDROMORPHONE
     Indication: PAIN
  2. BACLOFEN INTRATHECAL 100 MCG/ML [Suspect]
     Active Substance: BACLOFEN
     Indication: PAIN

REACTIONS (11)
  - Hypoaesthesia [None]
  - Catheter site pain [None]
  - Device inversion [None]
  - Road traffic accident [None]
  - Device issue [None]
  - Implant site haemorrhage [None]
  - Paraesthesia [None]
  - Gait disturbance [None]
  - Back pain [None]
  - Pain in extremity [None]
  - Loss of control of legs [None]

NARRATIVE: CASE EVENT DATE: 20141205
